FAERS Safety Report 19175563 (Version 1)
Quarter: 2021Q2

REPORT INFORMATION
  Report Type: Report from Study
  Country: CN (occurrence: CN)
  Receive Date: 20210423
  Receipt Date: 20210423
  Transmission Date: 20210717
  Serious: Yes (Other)
  Sender: FDA-Public Use
  Company Number: CN-TAKEDA-2021TUS025951

PATIENT

DRUGS (4)
  1. DOXORUBICIN [Suspect]
     Active Substance: DOXORUBICIN
     Indication: PLASMA CELL MYELOMA
     Dosage: 40 MILLIGRAM/SQ. METER
     Route: 042
  2. DEXAMETHASONE. [Suspect]
     Active Substance: DEXAMETHASONE
     Indication: PLASMA CELL MYELOMA
     Dosage: UNK
     Route: 042
  3. BORTEZOMIB. [Suspect]
     Active Substance: BORTEZOMIB
     Indication: PLASMA CELL MYELOMA
     Dosage: 1.3 MILLIGRAM/SQ. METER
     Route: 042
  4. DEXAMETHASONE. [Suspect]
     Active Substance: DEXAMETHASONE
     Indication: PLASMA CELL MYELOMA
     Dosage: 20 MILLIGRAM, QD
     Route: 048

REACTIONS (19)
  - Neutropenia [Unknown]
  - Rash [Unknown]
  - Herpes zoster [Unknown]
  - Intestinal obstruction [Unknown]
  - Thrombocytopenia [Unknown]
  - Abdominal distension [Unknown]
  - Pulmonary embolism [Unknown]
  - Cardiac failure [Unknown]
  - Electrocardiogram QT prolonged [Unknown]
  - Arrhythmia [Unknown]
  - Pneumonia [Unknown]
  - Anaemia [Unknown]
  - Left ventricular dysfunction [Unknown]
  - Neuropathy peripheral [Unknown]
  - Deep vein thrombosis [Unknown]
  - Vomiting [Unknown]
  - Diarrhoea [Unknown]
  - Urinary tract infection [Unknown]
  - Liver disorder [Unknown]
